FAERS Safety Report 4460170-6 (Version None)
Quarter: 2004Q3

REPORT INFORMATION
  Report Type: 
  Country: None (occurrence: None)
  Receive Date: 20040928
  Receipt Date: 20040109
  Transmission Date: 20050211
  Serious: No
  Sender: FDA-Public Use
  Company Number: US-GLAXOSMITHKLINE-A0492935A

PATIENT
  Sex: Female

DRUGS (3)
  1. SEREVENT [Suspect]
     Indication: ILL-DEFINED DISORDER
     Route: 055
     Dates: start: 20030701
  2. ADVAIR DISKUS 100/50 [Suspect]
     Indication: ILL-DEFINED DISORDER
     Route: 055
  3. SEREVENT [Concomitant]
     Route: 055

REACTIONS (1)
  - ILL-DEFINED DISORDER [None]
